FAERS Safety Report 25379800 (Version 1)
Quarter: 2025Q2

REPORT INFORMATION
  Report Type: Spontaneous
  Country: RO (occurrence: RO)
  Receive Date: 20250530
  Receipt Date: 20250530
  Transmission Date: 20250716
  Serious: Yes (Other)
  Sender: NOVARTIS
  Company Number: RO-002147023-NVSC2025RO083434

PATIENT
  Age: 8 Year
  Sex: Female

DRUGS (1)
  1. CYCLOSPORINE [Suspect]
     Active Substance: CYCLOSPORINE
     Indication: Nephrotic syndrome
     Route: 065

REACTIONS (8)
  - Hodgkin^s disease [Recovered/Resolved]
  - Pruritus [Not Recovered/Not Resolved]
  - Pyrexia [Unknown]
  - Weight decreased [Unknown]
  - Anaemia [Unknown]
  - C-reactive protein increased [Unknown]
  - Lymphadenopathy [Unknown]
  - Decreased appetite [Unknown]
